FAERS Safety Report 16657976 (Version 1)
Quarter: 2019Q3

REPORT INFORMATION
  Report Type: Spontaneous
  Country: US (occurrence: US)
  Receive Date: 20190801
  Receipt Date: 20190801
  Transmission Date: 20191004
  Serious: Yes (Disabling, Other)
  Sender: FDA-Public Use
  Company Number: US-TEVA-2019-US-1084412

PATIENT
  Sex: Female

DRUGS (2)
  1. VENLAFAXINE [Suspect]
     Active Substance: VENLAFAXINE HYDROCHLORIDE
     Indication: ANXIETY DISORDER
     Dosage: 75MG IN MORNING AND 150MG AT NIGHT
  2. VENLAFAXINE [Suspect]
     Active Substance: VENLAFAXINE HYDROCHLORIDE

REACTIONS (6)
  - Product substitution issue [Unknown]
  - Panic disorder [Unknown]
  - Drug ineffective [Unknown]
  - Paranoia [Unknown]
  - Abnormal behaviour [Unknown]
  - Loss of personal independence in daily activities [Unknown]
